FAERS Safety Report 19395738 (Version 1)
Quarter: 2021Q2

REPORT INFORMATION
  Report Type: Spontaneous
  Country: GB (occurrence: GB)
  Receive Date: 20210609
  Receipt Date: 20210609
  Transmission Date: 20210717
  Serious: Yes (Death)
  Sender: FDA-Public Use
  Company Number: GB-PERRIGO-21GB007101

PATIENT

DRUGS (19)
  1. AMIODARONE [Concomitant]
     Active Substance: AMIODARONE
  2. ARIPIPRAZOLE. [Concomitant]
     Active Substance: ARIPIPRAZOLE
     Dosage: 5 MG, QD
  3. MIDAZOLAM. [Concomitant]
     Active Substance: MIDAZOLAM
  4. NAPROXEN. [Concomitant]
     Active Substance: NAPROXEN
  5. CAFFEINE. [Concomitant]
     Active Substance: CAFFEINE
  6. DIAZEPAM. [Concomitant]
     Active Substance: DIAZEPAM
  7. LORAZEPAM. [Concomitant]
     Active Substance: LORAZEPAM
  8. LIGNOCAINE [Concomitant]
     Active Substance: LIDOCAINE HYDROCHLORIDE
  9. TRIMETHOPRIM. [Concomitant]
     Active Substance: TRIMETHOPRIM
  10. ALFENTANIL                         /00676302/ [Concomitant]
     Active Substance: ALFENTANIL HYDROCHLORIDE
  11. MORPHINE [Concomitant]
     Active Substance: MORPHINE
  12. PARACETAMOL [Suspect]
     Active Substance: ACETAMINOPHEN
     Indication: PRODUCT USED FOR UNKNOWN INDICATION
     Dosage: UNK
     Route: 065
  13. ATRACURIUM [Concomitant]
     Active Substance: ATRACURIUM
  14. CETIRIZINE [Concomitant]
     Active Substance: CETIRIZINE HYDROCHLORIDE
  15. CODEINE [Concomitant]
     Active Substance: CODEINE
  16. LAMOTRIGINE. [Concomitant]
     Active Substance: LAMOTRIGINE
     Dosage: 100 MG
  17. PROMETHAZINE [Concomitant]
     Active Substance: PROMETHAZINE HYDROCHLORIDE
     Dosage: 25 MG, PRN
  18. ZAPONEX [Suspect]
     Active Substance: CLOZAPINE
     Indication: SCHIZOPHRENIA
     Dosage: 150 MG, QD
     Route: 048
     Dates: start: 20180927, end: 20200622
  19. RISPERIDONE. [Concomitant]
     Active Substance: RISPERIDONE

REACTIONS (1)
  - Toxicity to various agents [Fatal]
